FAERS Safety Report 23411022 (Version 2)
Quarter: 2024Q1

REPORT INFORMATION
  Report Type: Other
  Country: GB (occurrence: GB)
  Receive Date: 20240117
  Receipt Date: 20240208
  Transmission Date: 20240409
  Serious: Yes (Other)
  Sender: FDA-Public Use
  Company Number: None

PATIENT

DRUGS (12)
  1. DOXYLAMINE SUCCINATE\PYRIDOXINE HYDROCHLORIDE [Suspect]
     Active Substance: DOXYLAMINE SUCCINATE\PYRIDOXINE HYDROCHLORIDE
     Indication: Hyperemesis gravidarum
     Dosage: UNK
     Dates: start: 2023, end: 2023
  2. DOXYLAMINE SUCCINATE\PYRIDOXINE HYDROCHLORIDE [Suspect]
     Active Substance: DOXYLAMINE SUCCINATE\PYRIDOXINE HYDROCHLORIDE
     Dosage: 3 TABLETS PER DAY
     Dates: start: 20240103, end: 20240104
  3. CYCLIZINE [Concomitant]
     Active Substance: CYCLIZINE
     Indication: Hyperemesis gravidarum
  4. FOLIC ACID [Concomitant]
     Active Substance: FOLIC ACID
     Indication: Pregnancy
     Dosage: 5 MILLIGRAM
  5. FOLIC ACID [Concomitant]
     Active Substance: FOLIC ACID
     Indication: Vitamin supplementation
     Dosage: 5 MILLIGRAM
  6. LANSOPRAZOLE [Concomitant]
     Active Substance: LANSOPRAZOLE
     Indication: Product used for unknown indication
  7. PROCHLORPERAZINE [Concomitant]
     Active Substance: PROCHLORPERAZINE
     Indication: Hyperemesis gravidarum
  8. ALBUTEROL [Concomitant]
     Active Substance: ALBUTEROL
     Indication: Asthma
  9. FLUTICASONE PROPIONATE\SALMETEROL XINAFOATE [Concomitant]
     Active Substance: FLUTICASONE PROPIONATE\SALMETEROL XINAFOATE
     Indication: Asthma
  10. SERTRALINE [Concomitant]
     Active Substance: SERTRALINE HYDROCHLORIDE
     Indication: Depression
     Dosage: 25 MG/D
     Dates: start: 20231120
  11. METOCLOPRAMIDE [Concomitant]
     Active Substance: METOCLOPRAMIDE
     Indication: Hyperemesis gravidarum
     Dosage: UNK
     Dates: start: 20231117, end: 20231118
  12. ONDANSETRON [Concomitant]
     Active Substance: ONDANSETRON
     Indication: Hyperemesis gravidarum
     Dosage: UNK
     Dates: start: 20231117, end: 20231117

REACTIONS (4)
  - Suicidal ideation [Recovering/Resolving]
  - Restless legs syndrome [Recovered/Resolved]
  - Palpitations [Recovered/Resolved]
  - Off label use [Recovered/Resolved]

NARRATIVE: CASE EVENT DATE: 20240103
